FAERS Safety Report 25751813 (Version 1)
Quarter: 2025Q3

REPORT INFORMATION
  Report Type: Spontaneous
  Country: US (occurrence: None)
  Receive Date: 20250901
  Receipt Date: 20250901
  Transmission Date: 20251020
  Serious: No
  Sender: FDA-CTU
  Company Number: None

PATIENT
  Age: 52 Year
  Sex: Female
  Weight: 72 kg

DRUGS (12)
  1. BROMFENAC\GATIFLOXACIN\PREDNISOLONE ACETATE [Suspect]
     Active Substance: BROMFENAC\GATIFLOXACIN\PREDNISOLONE ACETATE
     Indication: Cataract operation
     Dates: start: 20250617, end: 20250717
  2. BROMFENAC\GATIFLOXACIN\PREDNISOLONE ACETATE [Suspect]
     Active Substance: BROMFENAC\GATIFLOXACIN\PREDNISOLONE ACETATE
     Indication: Postoperative care
  3. OMEPRAZOLE [Concomitant]
     Active Substance: OMEPRAZOLE
  4. SERTRALINE [Concomitant]
     Active Substance: SERTRALINE HYDROCHLORIDE
  5. ALPRAZOLAM [Concomitant]
     Active Substance: ALPRAZOLAM
  6. ATORVASTATIN [Concomitant]
     Active Substance: ATORVASTATIN
  7. DOXEPIN [Concomitant]
     Active Substance: DOXEPIN
  8. RESTASIS [Concomitant]
     Active Substance: CYCLOSPORINE
  9. VITAMIN B12 [Concomitant]
     Active Substance: CYANOCOBALAMIN
  10. VITAMIN D [Concomitant]
     Active Substance: VITAMIN D NOS
  11. ALIGN [Concomitant]
     Active Substance: BIFIDOBACTERIUM LONGUM SUBSP. INFANTIS
  12. VITAMINS [Concomitant]
     Active Substance: VITAMINS

REACTIONS (6)
  - Yellow skin [None]
  - Nail discolouration [None]
  - Seborrhoea [None]
  - Skin texture abnormal [None]
  - Therapy interrupted [None]
  - Product preparation error [None]

NARRATIVE: CASE EVENT DATE: 20250617
